FAERS Safety Report 26014514 (Version 1)
Quarter: 2025Q4

REPORT INFORMATION
  Report Type: Spontaneous
  Country: CN (occurrence: CN)
  Receive Date: 20251108
  Receipt Date: 20251108
  Transmission Date: 20260117
  Serious: Yes (Hospitalization, Other)
  Sender: ROCHE
  Company Number: CN-ROCHE-10000430522

PATIENT
  Age: 8 Year
  Sex: Male

DRUGS (3)
  1. BEVACIZUMAB [Suspect]
     Active Substance: BEVACIZUMAB
     Indication: Breast cancer
     Route: 042
     Dates: start: 20251011, end: 20251011
  2. TINIDAZOLE [Suspect]
     Active Substance: TINIDAZOLE
     Indication: Breast cancer
     Route: 042
     Dates: start: 20251011, end: 20251013
  3. CISPLATIN [Suspect]
     Active Substance: CISPLATIN
     Indication: Breast cancer
     Route: 042
     Dates: start: 20251011, end: 20251011

REACTIONS (2)
  - Myelosuppression [Recovering/Resolving]
  - Off label use [Unknown]

NARRATIVE: CASE EVENT DATE: 20251031
